FAERS Safety Report 9250017 (Version 2)
Quarter: 2013Q4

REPORT INFORMATION
  Report Type: Spontaneous
  Country: BR (occurrence: BR)
  Receive Date: 20130424
  Receipt Date: 20131008
  Transmission Date: 20140711
  Serious: Yes (Other)
  Sender: FDA-Public Use
  Company Number: BR-AMGEN-BRASP2012059722

PATIENT
  Age: 58 Year
  Sex: Female
  Weight: 30 kg

DRUGS (8)
  1. ENBREL [Suspect]
     Indication: RHEUMATOID ARTHRITIS
     Dosage: 50 MG, ONCE WEEKLY
     Route: 058
     Dates: start: 20110713, end: 201302
  2. ENBREL [Suspect]
     Dosage: 50 MG, QWK
     Route: 058
     Dates: start: 2013
  3. LOSARTAN [Concomitant]
     Indication: BLOOD PRESSURE INCREASED
     Dosage: 50 MG, 2 TABLETS A DAY
     Route: 065
  4. ATENOLOL/CHLORTHALIDONE [Concomitant]
     Dosage: UNK
     Route: 065
  5. CALCIUM D3                         /00944201/ [Concomitant]
     Dosage: UNK
     Route: 065
  6. ATENOLOL [Concomitant]
     Indication: BLOOD PRESSURE INCREASED
     Dosage: 50 MG, 1 TABLET A DAY
     Route: 065
     Dates: start: 2003
  7. METHOTREXATE [Concomitant]
     Indication: RHEUMATOID ARTHRITIS
     Dosage: 1 TABLET IN THE MORNING AND  2 TABLETS AT NIGHT
     Route: 065
  8. METHOTREXATE [Concomitant]
     Dosage: 1 TABLET IN THE MORNING AND  2 TABLETS AT NIGHT, WEEKLY

REACTIONS (17)
  - Pyrexia [Unknown]
  - Gastric neoplasm [Unknown]
  - Abasia [Unknown]
  - Wrong technique in drug usage process [Unknown]
  - Haematoma [Recovered/Resolved]
  - Erythema [Unknown]
  - Pain [Unknown]
  - Bronchopneumonia [Unknown]
  - Injection site pain [Unknown]
  - Oropharyngeal pain [Not Recovered/Not Resolved]
  - Nasal obstruction [Not Recovered/Not Resolved]
  - Hypersensitivity [Unknown]
  - Pain in extremity [Not Recovered/Not Resolved]
  - Cough [Not Recovered/Not Resolved]
  - Weight increased [Not Recovered/Not Resolved]
  - Influenza [Unknown]
  - Nasopharyngitis [Not Recovered/Not Resolved]
